FAERS Safety Report 7701229-7 (Version None)
Quarter: 2011Q3

REPORT INFORMATION
  Report Type: 
  Country: None (occurrence: None)
  Receive Date: 20110822
  Receipt Date: 20110815
  Transmission Date: 20111222
  Serious: Yes (Other)
  Sender: FDA-Public Use
  Company Number: US-GLAXOSMITHKLINE-A0934789A

PATIENT
  Sex: Male

DRUGS (5)
  1. BLOOD PRESSURE MEDICATION [Concomitant]
  2. SINGULAIR [Concomitant]
  3. LIPITOR [Concomitant]
  4. PROAIR HFA [Concomitant]
  5. ADVAIR DISKUS 100/50 [Suspect]
     Indication: ASTHMA
     Dosage: 1PUFF TWICE PER DAY
     Route: 055
     Dates: start: 20030101

REACTIONS (3)
  - ASTHMA [None]
  - PRODUCT QUALITY ISSUE [None]
  - DRUG INEFFECTIVE [None]
